FAERS Safety Report 22102240 (Version 1)
Quarter: 2023Q1

REPORT INFORMATION
  Report Type: Report from Study
  Country: CN (occurrence: CN)
  Receive Date: 20230316
  Receipt Date: 20230316
  Transmission Date: 20230417
  Serious: Yes (Hospitalization, Other)
  Sender: FDA-Public Use
  Company Number: CN-GLAXOSMITHKLINE-CN2023APC038448

PATIENT

DRUGS (3)
  1. FLUTICASONE FUROATE\UMECLIDINIUM BROMIDE\VILANTEROL TRIFENATATE [Suspect]
     Active Substance: FLUTICASONE FUROATE\UMECLIDINIUM BROMIDE\VILANTEROL TRIFENATATE
     Indication: Chronic obstructive pulmonary disease
     Dosage: 1 SPRAY, QD
     Route: 055
     Dates: start: 20230308, end: 20230309
  2. STRONG LOQUAT CAPSULES [Concomitant]
     Indication: Cough
     Dosage: 0.9 G, TID
     Route: 048
     Dates: start: 20230308
  3. BUFEI HUOXUE CAPSULES [Concomitant]
     Indication: Cough
     Dosage: 1.05 G, TID
     Route: 048
     Dates: start: 20230308

REACTIONS (1)
  - Arrhythmia [Not Recovered/Not Resolved]

NARRATIVE: CASE EVENT DATE: 20230309
